FAERS Safety Report 21450434 (Version 4)
Quarter: 2022Q4

REPORT INFORMATION
  Report Type: Report from Study
  Country: CA (occurrence: CA)
  Receive Date: 20221013
  Receipt Date: 20221122
  Transmission Date: 20230112
  Serious: Yes (Other)
  Sender: FDA-Public Use
  Company Number: CA-BRISTOL-MYERS SQUIBB COMPANY-2022-117870

PATIENT
  Age: 56 Year
  Sex: Female
  Weight: 38 kg

DRUGS (2)
  1. OPDIVO [Suspect]
     Active Substance: NIVOLUMAB
     Indication: Nasopharyngeal cancer
     Dosage: EVERY 2 WEEKS, 3MG/KG
     Route: 042
     Dates: start: 20220824
  2. OPDIVO [Suspect]
     Active Substance: NIVOLUMAB
     Dosage: EVERY 2 WEEKS, 3MG/KG
     Route: 042
     Dates: start: 20220824

REACTIONS (7)
  - Blood pressure decreased [Unknown]
  - Epistaxis [Unknown]
  - Fatigue [Unknown]
  - Nasal congestion [Unknown]
  - Pain [Unknown]
  - Anxiety [Unknown]
  - Rash pruritic [Unknown]
